FAERS Safety Report 14424215 (Version 1)
Quarter: 2018Q1

REPORT INFORMATION
  Report Type: Spontaneous
  Country: FR (occurrence: FR)
  Receive Date: 20180123
  Receipt Date: 20180123
  Transmission Date: 20180509
  Serious: Yes (Other)
  Sender: FDA-Public Use
  Company Number: FR-MERCK KGAA-2040609

PATIENT
  Sex: Female

DRUGS (4)
  1. LEVOTHYROXINE SODIUM. [Suspect]
     Active Substance: LEVOTHYROXINE SODIUM
     Dates: start: 20170926
  2. BISOPROLOL [Concomitant]
     Active Substance: BISOPROLOL
  3. L THYROXIN [Concomitant]
     Active Substance: LEVOTHYROXINE SODIUM
     Dates: start: 20170926
  4. NOVOTHYROX [Suspect]
     Active Substance: LEVOTHYROXINE SODIUM
     Indication: AUTOIMMUNE THYROIDITIS
     Dates: start: 201705

REACTIONS (11)
  - Psychiatric symptom [None]
  - Blood thyroid stimulating hormone decreased [None]
  - Diarrhoea [None]
  - Mucous stools [None]
  - Gait disturbance [None]
  - Fine motor skill dysfunction [None]
  - Fear [None]
  - Tremor [None]
  - Colitis ulcerative [None]
  - Hypertension [None]
  - Abdominal discomfort [None]
